FAERS Safety Report 8230906-7 (Version None)
Quarter: 2012Q1

REPORT INFORMATION
  Report Type: 
  Country: None (occurrence: None)
  Receive Date: 20120323
  Receipt Date: 20120320
  Transmission Date: 20120608
  Serious: Yes (Other)
  Sender: FDA-Public Use
  Company Number: US-PFIZER INC-2012072835

PATIENT
  Sex: Female
  Weight: 99.773 kg

DRUGS (2)
  1. LIPITOR [Suspect]
     Indication: BLOOD CHOLESTEROL INCREASED
     Dosage: 20 MG, DAILY
     Route: 048
  2. NORVASC [Suspect]
     Dosage: 20 MG, DAILY
     Route: 048
     Dates: start: 19860801

REACTIONS (2)
  - DIABETES MELLITUS [None]
  - KIDNEY INFECTION [None]
